FAERS Safety Report 22175925 (Version 1)
Quarter: 2023Q2

REPORT INFORMATION
  Report Type: Spontaneous
  Country: US (occurrence: None)
  Receive Date: 20230403
  Receipt Date: 20230403
  Transmission Date: 20230721
  Serious: No
  Sender: FDA-Public Use
  Company Number: None

PATIENT
  Age: 32 Year
  Sex: Female
  Weight: 75.75 kg

DRUGS (5)
  1. LAMOTRIGINE [Suspect]
     Active Substance: LAMOTRIGINE
  2. LAMOTRIGINE [Suspect]
     Active Substance: LAMOTRIGINE
  3. BUPROPION [Suspect]
     Active Substance: BUPROPION
  4. QUETIAPINE [Suspect]
     Active Substance: QUETIAPINE
  5. LEVOTHYROXINE [Suspect]
     Active Substance: LEVOTHYROXINE

REACTIONS (2)
  - Gestational hypertension [None]
  - Exposure during pregnancy [None]

NARRATIVE: CASE EVENT DATE: 20220417
